FAERS Safety Report 17645257 (Version 1)
Quarter: 2020Q2

REPORT INFORMATION
  Report Type: Spontaneous
  Country: GB (occurrence: GB)
  Receive Date: 20200408
  Receipt Date: 20200408
  Transmission Date: 20200713
  Serious: Yes (Death, Other)
  Sender: FDA-Public Use
  Company Number: NVSC2020GB091211

PATIENT
  Age: 49 Year
  Sex: Male

DRUGS (9)
  1. LUTATHERA [Suspect]
     Active Substance: LUTETIUM OXODOTREOTIDE LU-177
     Dosage: 7.4 GBQ (2ND CYCLE)
     Route: 065
     Dates: start: 201501
  2. CREON [Concomitant]
     Active Substance: PANCRELIPASE AMYLASE\PANCRELIPASE LIPASE\PANCRELIPASE PROTEASE
     Indication: STEATORRHOEA
     Dosage: UNK
     Route: 065
  3. OCTREOTIDE. [Concomitant]
     Active Substance: OCTREOTIDE
     Dosage: 100 UG/TDS
     Route: 065
  4. LUTATHERA [Suspect]
     Active Substance: LUTETIUM OXODOTREOTIDE LU-177
     Dosage: 7.4 GBQ (3RD CYCLE)
     Route: 065
     Dates: start: 201503
  5. LANREOTIDE [Concomitant]
     Active Substance: LANREOTIDE
     Indication: NEUROENDOCRINE TUMOUR
     Dosage: 120 MG, Q3W
     Route: 065
  6. LANREOTIDE [Concomitant]
     Active Substance: LANREOTIDE
     Dosage: 120 MG, BIW
     Route: 065
  7. LUTATHERA [Suspect]
     Active Substance: LUTETIUM OXODOTREOTIDE LU-177
     Indication: NEUROENDOCRINE TUMOUR
     Dosage: 7.4 GBQ (1ST CYCLE)
     Route: 065
     Dates: start: 201411
  8. LUTATHERA [Suspect]
     Active Substance: LUTETIUM OXODOTREOTIDE LU-177
     Dosage: 7.4 GBQ (4TH CYCLE)
     Route: 065
     Dates: start: 201505
  9. OCTREOTIDE. [Concomitant]
     Active Substance: OCTREOTIDE
     Indication: NEUROENDOCRINE TUMOUR
     Dosage: UNK (BEFORE AND BETWEEN EACH PRRT)
     Route: 058

REACTIONS (13)
  - Neuroendocrine tumour [Unknown]
  - Diarrhoea [Recovered/Resolved]
  - Fatigue [Recovering/Resolving]
  - Death [Fatal]
  - Tumour marker increased [Unknown]
  - Weight increased [Unknown]
  - Nausea [Unknown]
  - Weight decreased [Not Recovered/Not Resolved]
  - Malignant neoplasm progression [Unknown]
  - Abdominal pain [Unknown]
  - General physical health deterioration [Unknown]
  - Dental caries [Unknown]
  - Vomiting [Unknown]

NARRATIVE: CASE EVENT DATE: 201411
